FAERS Safety Report 4640622-6 (Version None)
Quarter: 2005Q2

REPORT INFORMATION
  Report Type: 
  Country: None (occurrence: None)
  Receive Date: 20050419
  Receipt Date: 20050406
  Transmission Date: 20051028
  Serious: Yes (Hospitalization, Other)
  Sender: FDA-Public Use
  Company Number: 2005058345

PATIENT
  Age: 63 Year
  Sex: Female

DRUGS (5)
  1. GABAPENTIN [Suspect]
     Indication: DIABETIC NEUROPATHY
     Dosage: 1800 MG (1 D)
  2. TRAMADOL HCL [Suspect]
     Indication: ILL-DEFINED DISORDER
     Dosage: 200 MG (1 D)
  3. ENALAPRIL MALEATE [Suspect]
     Indication: HYPERTENSION
  4. NEBIVOLOL (NEBIVOLOL) [Suspect]
     Indication: HYPERTENSION
  5. INSULIN [Suspect]
     Indication: DIABETES MELLITUS INSULIN-DEPENDENT

REACTIONS (9)
  - ABDOMINAL PAIN LOWER [None]
  - APATHY [None]
  - ASTHENIA [None]
  - BILIARY DILATATION [None]
  - DRUG INEFFECTIVE [None]
  - DRUG INTERACTION [None]
  - HEPATOMEGALY [None]
  - HEPATOTOXICITY [None]
  - MALAISE [None]
